FAERS Safety Report 18179826 (Version 1)
Quarter: 2020Q3

REPORT INFORMATION
  Report Type: Spontaneous
  Country: FR (occurrence: FR)
  Receive Date: 20200821
  Receipt Date: 20200821
  Transmission Date: 20201103
  Serious: Yes (Hospitalization)
  Sender: FDA-Public Use
  Company Number: FR-ROCHE-2663060

PATIENT
  Age: 51 Year
  Sex: Male
  Weight: 66 kg

DRUGS (2)
  1. KEYTRUDA [Suspect]
     Active Substance: PEMBROLIZUMAB
     Indication: MALIGNANT MELANOMA
     Dosage: 140 MG PAR PERFUSION?DATE OF MOST RECENT DOSE: 25/JAN/2019
     Route: 042
     Dates: start: 20160805
  2. AVASTIN [Suspect]
     Active Substance: BEVACIZUMAB
     Indication: OSTEORADIONECROSIS
     Route: 041
     Dates: start: 20190308, end: 20190419

REACTIONS (1)
  - Colitis microscopic [Recovering/Resolving]

NARRATIVE: CASE EVENT DATE: 20190410
